FAERS Safety Report 6756359-3 (Version None)
Quarter: 2010Q2

REPORT INFORMATION
  Report Type: 
  Country: None (occurrence: None)
  Receive Date: 20100524
  Receipt Date: 20100215
  Transmission Date: 20101027
  Serious: Yes (Hospitalization)
  Sender: FDA-Public Use
  Company Number: 007051

PATIENT
  Sex: Female
  Weight: 100.7 kg

DRUGS (3)
  1. CIMZIA [Suspect]
     Indication: CROHN'S DISEASE
     Dosage: (SUBCUTANEOUS)
     Route: 058
     Dates: start: 20090801
  2. PREDNISONE [Concomitant]
  3. APO-CIPROFLOX [Concomitant]

REACTIONS (1)
  - LARGE INTESTINAL OBSTRUCTION [None]
